FAERS Safety Report 6243443-6 (Version None)
Quarter: 2009Q2

REPORT INFORMATION
  Report Type: 
  Country: None (occurrence: None)
  Receive Date: 20090624
  Receipt Date: 20090612
  Transmission Date: 20091009
  Serious: Yes (Death, Other)
  Sender: FDA-Public Use
  Company Number: MX-ELI_LILLY_AND_COMPANY-MX200903003611

PATIENT
  Age: 42 Year
  Sex: Female

DRUGS (4)
  1. OLANZAPINE [Suspect]
  2. OLANZAPINE [Suspect]
     Dosage: 100 MG, UNKNOWN
     Route: 065
  3. VALPROIC ACID [Concomitant]
     Dosage: UNK, UNKNOWN
     Route: 065
  4. LEVOMEPROMAZINE [Concomitant]
     Dosage: UNK, UNKNOWN
     Route: 065

REACTIONS (4)
  - ANXIETY [None]
  - INFARCTION [None]
  - INTENTIONAL OVERDOSE [None]
  - SUICIDE ATTEMPT [None]
